FAERS Safety Report 6642880-5 (Version None)
Quarter: 2010Q1

REPORT INFORMATION
  Report Type: 
  Country: None (occurrence: None)
  Receive Date: 20100319
  Receipt Date: 20100305
  Transmission Date: 20100710
  Serious: Yes (Hospitalization)
  Sender: FDA-Public Use
  Company Number: US-ELI_LILLY_AND_COMPANY-US201003002427

PATIENT
  Sex: Female

DRUGS (5)
  1. FORTEO [Suspect]
     Indication: OSTEOPOROSIS
     Dosage: 20 UG, DAILY (1/D)
  2. COUMADIN [Concomitant]
     Dosage: 1 MG, DAILY (1/D)
  3. PROZAC [Concomitant]
     Dosage: 20 MG, 2 TABLETS DAILY
  4. BYSTOLIC [Concomitant]
     Dosage: 10 MG, DAILY (1/D)
  5. LISINOPRIL [Concomitant]
     Dosage: 40 MG, DAILY (1/D)

REACTIONS (1)
  - SCIATIC NERVE INJURY [None]
